FAERS Safety Report 10213578 (Version 1)
Quarter: 2014Q2

REPORT INFORMATION
  Report Type: Spontaneous
  Country: GB (occurrence: GB)
  Receive Date: 20140603
  Receipt Date: 20140603
  Transmission Date: 20141212
  Serious: Yes (Other)
  Sender: FDA-Public Use
  Company Number: GB-RANBAXY-2014RR-81792

PATIENT
  Age: 16 Year
  Sex: Female

DRUGS (2)
  1. ISOTRETINOIN [Suspect]
     Indication: ACNE
     Dosage: 60 MG, UNK
     Route: 065
     Dates: start: 20071217, end: 20080226
  2. BENZOYL PEROXIDE [Concomitant]
     Indication: PRODUCT USED FOR UNKNOWN INDICATION
     Dosage: UNK
     Route: 065

REACTIONS (1)
  - Maternal exposure before pregnancy [Unknown]
